FAERS Safety Report 6517689-3 (Version None)
Quarter: 2009Q4

REPORT INFORMATION
  Report Type: 
  Country: None (occurrence: None)
  Receive Date: 20091224
  Receipt Date: 20091217
  Transmission Date: 20100525
  Serious: Yes (Death, Hospitalization)
  Sender: FDA-Public Use
  Company Number: RU-ELI_LILLY_AND_COMPANY-RU200912004471

PATIENT
  Age: 60 Year
  Sex: Female

DRUGS (1)
  1. ALIMTA [Suspect]
     Indication: COLON CANCER METASTATIC
     Dosage: UNK, UNKNOWN
     Route: 065

REACTIONS (6)
  - COLON CANCER METASTATIC [None]
  - ENTERITIS [None]
  - FEBRILE NEUTROPENIA [None]
  - OFF LABEL USE [None]
  - STOMATITIS [None]
  - WRONG DRUG ADMINISTERED [None]
